FAERS Safety Report 5376286-6 (Version None)
Quarter: 2007Q2

REPORT INFORMATION
  Report Type: 
  Country: None (occurrence: None)
  Receive Date: 20070627
  Receipt Date: 20070627
  Transmission Date: 20071010
  Serious: No
  Sender: FDA-Public Use
  Company Number: None

PATIENT
  Age: 47 Year
  Sex: Female
  Weight: 95.3 kg

DRUGS (6)
  1. ISOVUE-300 [Suspect]
     Indication: COMPUTERISED TOMOGRAM
     Dosage: 130 ML IV X 1 DOSE
     Route: 042
     Dates: start: 20050303
  2. PAXIL [Concomitant]
  3. MULTI-VITAMIN [Concomitant]
  4. CALCIUM CARBONATE/VITAMIN D [Concomitant]
  5. PSEUDOEPHEDRINE HCL [Concomitant]
  6. FLONASE [Concomitant]

REACTIONS (4)
  - FEELING ABNORMAL [None]
  - LIP DISORDER [None]
  - PRURITUS [None]
  - URTICARIA [None]
